FAERS Safety Report 7344654-9 (Version None)
Quarter: 2011Q1

REPORT INFORMATION
  Report Type: 
  Country: None (occurrence: None)
  Receive Date: 20110310
  Receipt Date: 20110302
  Transmission Date: 20110831
  Serious: Yes (Death, Hospitalization)
  Sender: FDA-Public Use
  Company Number: JP-GENZYME-THYM-1001894

PATIENT
  Sex: Male
  Weight: 80 kg

DRUGS (14)
  1. FLUCONAZOLE [Concomitant]
     Indication: INFECTION PROPHYLAXIS
     Dosage: UNK
     Dates: start: 20091225, end: 20100116
  2. RED BLOOD CELLS, CONCENTRATED [Concomitant]
     Indication: APLASTIC ANAEMIA
     Dosage: UNK
     Dates: start: 20091026
  3. THYMOGLOBULIN [Suspect]
     Dosage: 200 MG, QD
     Route: 042
     Dates: start: 20100106, end: 20100109
  4. LENOGRASTIM [Concomitant]
     Indication: NEUTROPHIL COUNT DECREASED
  5. CICLOSPORIN [Concomitant]
     Indication: APLASTIC ANAEMIA
     Dosage: UNK
     Dates: start: 20091110, end: 20100401
  6. LEVOFLOXACIN [Concomitant]
     Indication: INFECTION PROPHYLAXIS
     Dosage: UNK
     Dates: start: 20091216, end: 20100112
  7. THYMOGLOBULIN [Suspect]
     Indication: APLASTIC ANAEMIA
     Dosage: 200 MG, QD
     Route: 042
     Dates: start: 20100105, end: 20100105
  8. PLATELETS [Concomitant]
     Indication: APLASTIC ANAEMIA
     Dosage: UNK
     Dates: start: 20091026
  9. HYDROCORTISONE SODIUM PHOSPHATE [Concomitant]
     Indication: PREMEDICATION
     Dosage: UNK
     Dates: start: 20100105
  10. DEXCHLORPHENIRAMINE MALEATE [Concomitant]
     Indication: APLASTIC ANAEMIA
     Dosage: UNK
     Dates: start: 20100105
  11. NEUPOGEN [Concomitant]
     Indication: APLASTIC ANAEMIA
     Dosage: UNK
     Dates: start: 20091218
  12. METHYLPREDNISOLONE SODIUM SUCCINATE [Concomitant]
     Indication: PREMEDICATION
     Dosage: UNK
     Dates: start: 20100105, end: 20100115
  13. HYDROCORTISONE SODIUM PHOSPHATE [Concomitant]
     Indication: APLASTIC ANAEMIA
  14. LENOGRASTIM [Concomitant]
     Indication: APLASTIC ANAEMIA
     Dosage: UNK
     Dates: start: 20100105

REACTIONS (7)
  - NEUTROPHIL COUNT DECREASED [None]
  - DEATH [None]
  - HYPERGLYCAEMIA [None]
  - FEBRILE NEUTROPENIA [None]
  - STAPHYLOCOCCAL INFECTION [None]
  - PYREXIA [None]
  - RENAL IMPAIRMENT [None]
